FAERS Safety Report 9241167 (Version 1)
Quarter: 2013Q1

REPORT INFORMATION
  Report Type: Spontaneous
  Country: US (occurrence: None)
  Receive Date: 20121120
  Receipt Date: 20121120
  Transmission Date: 20140127
  Serious: No
  Sender: FDA-Public Use
  Company Number: 1000038232

PATIENT
  Age: 56 Year
  Sex: Female

DRUGS (10)
  1. VIIBRYD [Suspect]
     Dosage: 10 MG (10 MG, 1 IN 1 D), ORAL
     Route: 048
  2. VIIBRYD [Suspect]
     Dosage: 20 MG (20 MG, 1 IN 1 D), ORAL
     Route: 048
     Dates: start: 20120821
  3. COUMADIN (WARFARIN) (WARFARIN) [Concomitant]
  4. LORTAB (HYDROCODONE, ACETAMINOPHEN)  (HYDROCODONE, ACETAMINOPHEN) [Concomitant]
  5. KLONOPIN [Concomitant]
  6. LYRICA (PREGABALIN) (PREGABALIN) [Concomitant]
  7. VIT D (ERGOCALCIFEROL) (ERGOCALCIFEROL) [Concomitant]
  8. PHENERGAN (PROMETHAZINE) (PROMETHAZINE) [Concomitant]
  9. FLEXERIL (CYCLOBENZAPRINE) CYCLOBENZAPRINE) [Concomitant]
  10. ESTRADIOL (ESTRADIOL) (ESTRADIOL) [Concomitant]

REACTIONS (6)
  - Fatigue [None]
  - Arthralgia [None]
  - Myalgia [None]
  - Feeling abnormal [None]
  - Somnolence [None]
  - Drug ineffective [None]
